FAERS Safety Report 18977781 (Version 1)
Quarter: 2021Q1

REPORT INFORMATION
  Report Type: Spontaneous
  Country: US (occurrence: US)
  Receive Date: 20210306
  Receipt Date: 20210306
  Transmission Date: 20210420
  Serious: Yes (Disabling)
  Sender: FDA-Public Use
  Company Number: US-ORGANON-O2103USA000525

PATIENT
  Sex: Female

DRUGS (1)
  1. SINGULAIR [Suspect]
     Active Substance: MONTELUKAST SODIUM
     Dosage: UNK
     Route: 048
     Dates: start: 2010, end: 2020

REACTIONS (4)
  - Neuropsychiatric symptoms [Not Recovered/Not Resolved]
  - Tic [Not Recovered/Not Resolved]
  - Dysphemia [Not Recovered/Not Resolved]
  - Tremor [Not Recovered/Not Resolved]
